FAERS Safety Report 19884914 (Version 1)
Quarter: 2021Q3

REPORT INFORMATION
  Report Type: Spontaneous
  Country: CH (occurrence: CH)
  Receive Date: 20210927
  Receipt Date: 20210927
  Transmission Date: 20211014
  Serious: Yes (Other)
  Sender: FDA-Public Use
  Company Number: CH-ABBVIE-21K-151-4090458-00

PATIENT
  Age: 15 Year
  Sex: Female
  Weight: 88 kg

DRUGS (2)
  1. LUCRIN DEPOT [Suspect]
     Active Substance: LEUPROLIDE ACETATE
     Indication: GENDER DYSPHORIA
     Dosage: 1 DOSE
     Route: 030
     Dates: start: 202104, end: 202104
  2. CO?AMOXI [Suspect]
     Active Substance: AMOXICILLIN\CLAVULANATE POTASSIUM
     Indication: ABSCESS
     Route: 048
     Dates: start: 20210615, end: 20210629

REACTIONS (10)
  - Dyshidrotic eczema [Recovering/Resolving]
  - Inflammation [Unknown]
  - Rash [Unknown]
  - Leukocytosis [Unknown]
  - C-reactive protein increased [Unknown]
  - Erythema nodosum [Recovering/Resolving]
  - Rash vesicular [Recovering/Resolving]
  - Rash macular [Unknown]
  - Nodule [Recovering/Resolving]
  - Injection site abscess sterile [Unknown]

NARRATIVE: CASE EVENT DATE: 202106
